FAERS Safety Report 21019943 (Version 1)
Quarter: 2022Q2

REPORT INFORMATION
  Report Type: Report from Study
  Country: IN (occurrence: IN)
  Receive Date: 20220628
  Receipt Date: 20220628
  Transmission Date: 20220721
  Serious: Yes (Hospitalization, Other)
  Sender: FDA-Public Use
  Company Number: IN-SA-2022SA247164

PATIENT
  Age: 46 Year
  Sex: Female

DRUGS (1)
  1. LEFLUNOMIDE [Suspect]
     Active Substance: LEFLUNOMIDE
     Indication: Multiple sclerosis
     Dosage: UNK

REACTIONS (5)
  - Carditis [Unknown]
  - Cardiogenic shock [Unknown]
  - Drug-induced liver injury [Unknown]
  - Hepatocellular injury [Unknown]
  - Drug reaction with eosinophilia and systemic symptoms [Unknown]
